FAERS Safety Report 11268974 (Version 1)
Quarter: 2015Q3

REPORT INFORMATION
  Report Type: Spontaneous
  Country: US (occurrence: None)
  Receive Date: 20150710
  Receipt Date: 20150710
  Transmission Date: 20151125
  Serious: Yes (Disabling)
  Sender: FDA-Public Use
  Company Number: US-H14001-15-01063

PATIENT
  Age: 23 Year
  Sex: Female

DRUGS (2)
  1. LIDOCAINE WITH EPINEPHRINE [Suspect]
     Active Substance: EPINEPHRINE BITARTRATE\LIDOCAINE HYDROCHLORIDE
     Indication: EPIDURAL ANAESTHESIA
     Route: 008
  2. MORPHINE (MORPHINE SULFATE) (UNKNOWN) (MORPHINE SULFATE) [Suspect]
     Active Substance: MORPHINE SULFATE
     Indication: EPIDURAL ANAESTHESIA
     Route: 008

REACTIONS (8)
  - Areflexia [None]
  - Quadriplegia [None]
  - Caesarean section [None]
  - Vomiting [None]
  - Coma [None]
  - Unresponsive to stimuli [None]
  - Cerebrovascular accident [None]
  - Pupil fixed [None]
